FAERS Safety Report 10043886 (Version 1)
Quarter: 2014Q1

REPORT INFORMATION
  Report Type: Spontaneous
  Country: US (occurrence: US)
  Receive Date: 20140328
  Receipt Date: 20140328
  Transmission Date: 20141002
  Serious: No
  Sender: FDA-Public Use
  Company Number: US-B.I. PHARMACEUTICALS,INC./RIDGEFIELD-2014-BI-12225BP

PATIENT
  Sex: Female
  Weight: 56 kg

DRUGS (7)
  1. COMBIVENT [Suspect]
     Indication: CHRONIC OBSTRUCTIVE PULMONARY DISEASE
     Dosage: STRENGTH: 18 MCG / 103 MCG; DAILY DOSE: 144MCG/824MCG
     Route: 055
     Dates: start: 1997, end: 201402
  2. SPIRIVA [Suspect]
     Indication: CHRONIC OBSTRUCTIVE PULMONARY DISEASE
     Dosage: 18 MCG
     Route: 055
     Dates: start: 1999
  3. SYMBICORT [Concomitant]
     Indication: CHRONIC OBSTRUCTIVE PULMONARY DISEASE
     Dosage: 4 PUF
     Route: 055
     Dates: start: 201310, end: 201312
  4. ALBUTEROL NEBULIZER [Concomitant]
     Indication: CHRONIC OBSTRUCTIVE PULMONARY DISEASE
     Dosage: FORMULATION: INHALATION AEROSOL
     Route: 055
  5. DULERA [Concomitant]
     Indication: CHRONIC OBSTRUCTIVE PULMONARY DISEASE
     Dosage: 4 PUF
     Route: 055
     Dates: start: 201307, end: 201309
  6. IBUPROFEN [Concomitant]
     Indication: ARTHRITIS
     Route: 048
  7. IBUPROFEN [Concomitant]
     Indication: SINUS HEADACHE

REACTIONS (5)
  - Cardiac disorder [Recovered/Resolved]
  - Decreased appetite [Not Recovered/Not Resolved]
  - Nail disorder [Not Recovered/Not Resolved]
  - Abdominal pain upper [Not Recovered/Not Resolved]
  - Product quality issue [Unknown]
